FAERS Safety Report 5334348-3 (Version None)
Quarter: 2007Q2

REPORT INFORMATION
  Report Type: 
  Country: None (occurrence: None)
  Receive Date: 20070525
  Receipt Date: 20070126
  Transmission Date: 20071010
  Serious: Yes (Hospitalization)
  Sender: FDA-Public Use
  Company Number: US-BRISTOL-MYERS SQUIBB COMPANY-13634308

PATIENT
  Sex: Female
  Weight: 74 kg

DRUGS (4)
  1. CYTOXAN [Suspect]
     Indication: BREAST CANCER
  2. DOXORUBICIN [Suspect]
     Indication: BREAST CANCER
  3. FLUOROURACIL [Suspect]
     Indication: BREAST CANCER
  4. CHEMOTHERAPY [Concomitant]
     Indication: BREAST CANCER

REACTIONS (13)
  - AMNESIA [None]
  - ANAPHYLACTIC REACTION [None]
  - BONE PAIN [None]
  - CARDIAC DISORDER [None]
  - COGNITIVE DISORDER [None]
  - CONFUSIONAL STATE [None]
  - DISTURBANCE IN ATTENTION [None]
  - HYPERAESTHESIA [None]
  - MUSCLE FATIGUE [None]
  - MUSCLE SPASMS [None]
  - MYOCARDIAL INFARCTION [None]
  - PAROSMIA [None]
  - TRANSIENT ISCHAEMIC ATTACK [None]
